FAERS Safety Report 5080246-2 (Version None)
Quarter: 2006Q3

REPORT INFORMATION
  Report Type: 
  Country: None (occurrence: None)
  Receive Date: 20060815
  Receipt Date: 20060804
  Transmission Date: 20061208
  Serious: Yes (Death, Hospitalization)
  Sender: FDA-Public Use
  Company Number: US-JNJFOC-20060801430

PATIENT
  Age: 51 Year
  Sex: Female

DRUGS (6)
  1. REMICADE [Suspect]
  2. REMICADE [Suspect]
     Indication: GRAFT VERSUS HOST DISEASE
  3. REMICADE [Suspect]
     Indication: CROHN'S DISEASE
  4. IMURAN [Suspect]
     Indication: DRUG USE FOR UNKNOWN INDICATION
  5. GM-CSF [Concomitant]
  6. SULFASALAZINE [Concomitant]

REACTIONS (7)
  - ACUTE MYELOID LEUKAEMIA [None]
  - ASPERGILLOSIS [None]
  - BONE MARROW TRANSPLANT [None]
  - GRAFT VERSUS HOST DISEASE [None]
  - HEMIPARESIS [None]
  - LEUKOPENIA [None]
  - TRANSPLANT FAILURE [None]
